FAERS Safety Report 4795494-6 (Version None)
Quarter: 2005Q3

REPORT INFORMATION
  Report Type: 
  Country: None (occurrence: None)
  Receive Date: 20050916
  Receipt Date: 20050524
  Transmission Date: 20060218
  Serious: Yes (Other)
  Sender: FDA-Public Use
  Company Number: US-JNJFOC-20050506916

PATIENT
  Age: 40 Year
  Sex: Female

DRUGS (2)
  1. TOPAMAX [Suspect]
     Indication: WEIGHT LOSS DIET
     Dosage: 25MG, 1 IN 1 DAY; ORAL
     Route: 048
     Dates: start: 20050415, end: 20050520
  2. SOLOARAZE (CREAM ) DICLOFENAC [Concomitant]

REACTIONS (3)
  - DECREASED APPETITE [None]
  - DRUG SCREEN POSITIVE [None]
  - WEIGHT DECREASED [None]
